FAERS Safety Report 8201980-9 (Version None)
Quarter: 2012Q1

REPORT INFORMATION
  Report Type: 
  Country: None (occurrence: None)
  Receive Date: 20120308
  Receipt Date: 20120222
  Transmission Date: 20120608
  Serious: Yes (Hospitalization)
  Sender: FDA-Public Use
  Company Number: INT_00056_2012

PATIENT
  Age: 62 Year
  Sex: Female

DRUGS (3)
  1. CEFMETAZOLE(CEFMETAZOLE) [Suspect]
     Indication: PNEUMONIA ASPIRATION
     Dosage: 2 G QD
  2. PEROSIPRONE [Concomitant]
  3. AMPICILLIN AND SULBACTAM [Suspect]
     Indication: PNEUMONIA ASPIRATION
     Dosage: 3 G QD

REACTIONS (5)
  - VITAMIN K DEFICIENCY [None]
  - PROTEIN INDUCED BY VITAMIN K ABSENCE OR ANTAGONIST II INCREASED [None]
  - NO THERAPEUTIC RESPONSE [None]
  - INTERNATIONAL NORMALISED RATIO INCREASED [None]
  - CARCINOEMBRYONIC ANTIGEN INCREASED [None]
